FAERS Safety Report 8949465 (Version 3)
Quarter: 2013Q1

REPORT INFORMATION
  Report Type: Spontaneous
  Country: US (occurrence: US)
  Receive Date: 20121206
  Receipt Date: 20130114
  Transmission Date: 20140127
  Serious: Yes (Other)
  Sender: FDA-Public Use
  Company Number: US-PFIZER INC-2012303865

PATIENT
  Age: 70 Year
  Sex: Male

DRUGS (1)
  1. SUTENT [Suspect]
     Indication: RENAL CANCER
     Dosage: 50 MG, DAILY FOR 28 DAYS
     Route: 048
     Dates: start: 20121108, end: 20121108

REACTIONS (4)
  - Urinary tract infection [Unknown]
  - Bradycardia [Unknown]
  - Dyspnoea [Unknown]
  - Drug intolerance [Unknown]
